FAERS Safety Report 7852778-2 (Version None)
Quarter: 2011Q4

REPORT INFORMATION
  Report Type: 
  Country: None (occurrence: None)
  Receive Date: 20111026
  Receipt Date: 20111019
  Transmission Date: 20120403
  Serious: Yes (Other)
  Sender: FDA-Public Use
  Company Number: JP-ASTRAZENECA-2011SE60379

PATIENT
  Age: 60 Year
  Sex: Male

DRUGS (2)
  1. IRESSA [Suspect]
     Route: 048
     Dates: start: 20111004, end: 20111018
  2. IRESSA [Suspect]
     Indication: LUNG ADENOCARCINOMA
     Route: 048
     Dates: start: 20110701, end: 20111003

REACTIONS (1)
  - HEPATIC FUNCTION ABNORMAL [None]
